FAERS Safety Report 7625826-2 (Version None)
Quarter: 2011Q3

REPORT INFORMATION
  Report Type: 
  Country: None (occurrence: None)
  Receive Date: 20110721
  Receipt Date: 20110712
  Transmission Date: 20111222
  Serious: Yes (Life-Threatening, Hospitalization)
  Sender: FDA-Public Use
  Company Number: DE-NOVOPROD-331651

PATIENT
  Sex: Female
  Weight: 74 kg

DRUGS (5)
  1. NOVODIGAL MITE [Concomitant]
  2. HERZ ASS 100 [Concomitant]
  3. PENTAERYTHRITOL TETRANITRATE [Concomitant]
  4. LOSARTAN COMP. 100/25 [Concomitant]
  5. ACTRAPHANE 30 PENFILL [Suspect]
     Indication: PRODUCT USED FOR UNKNOWN INDICATION
     Route: 058
     Dates: start: 20101014

REACTIONS (1)
  - BONE SARCOMA [None]
